FAERS Safety Report 6154339-2 (Version None)
Quarter: 2009Q2

REPORT INFORMATION
  Report Type: 
  Country: None (occurrence: None)
  Receive Date: 20090414
  Receipt Date: 20090404
  Transmission Date: 20091009
  Serious: Yes (Hospitalization, Other)
  Sender: FDA-Public Use
  Company Number: FR-ABBOTT-09P-056-0566608-00

PATIENT
  Age: 66 Year
  Sex: Male

DRUGS (5)
  1. RITONAVIR [Suspect]
     Indication: HIV INFECTION
     Route: 048
     Dates: start: 20050701
  2. FLUTICASONE PROPIONATE W/SALMETEROL XINAFOATE [Interacting]
     Indication: BRONCHIAL HYPERREACTIVITY
     Dosage: 250/50 MCG DISKUS
     Route: 055
     Dates: start: 20050701, end: 20051201
  3. LAMIVUDINE [Concomitant]
     Indication: DRUG USE FOR UNKNOWN INDICATION
     Route: 048
     Dates: start: 20050701
  4. ATAZANAVIR SULFATE [Concomitant]
     Indication: DRUG USE FOR UNKNOWN INDICATION
     Route: 048
     Dates: start: 20050701
  5. DIDANOSINE [Concomitant]
     Indication: DRUG USE FOR UNKNOWN INDICATION
     Route: 048
     Dates: start: 20050701

REACTIONS (10)
  - ADRENAL INSUFFICIENCY [None]
  - AMYOTROPHY [None]
  - CENTRAL OBESITY [None]
  - CUSHING'S SYNDROME [None]
  - DEPRESSION [None]
  - DRUG INTERACTION [None]
  - HYPERTENSION [None]
  - LIPOHYPERTROPHY [None]
  - OSTEOPOROSIS [None]
  - SPINAL COMPRESSION FRACTURE [None]
